FAERS Safety Report 9288277 (Version 1)
Quarter: 2013Q2

REPORT INFORMATION
  Report Type: Report from Study
  Country: US (occurrence: US)
  Receive Date: 20130514
  Receipt Date: 20130514
  Transmission Date: 20140414
  Serious: Yes (Hospitalization, Other)
  Sender: FDA-Public Use
  Company Number: PHEH2013US009509

PATIENT
  Age: 38 Year
  Sex: Female

DRUGS (7)
  1. TASIGNA [Suspect]
     Indication: CHRONIC MYELOID LEUKAEMIA
     Dosage: 300 MG, BID
     Route: 048
  2. TASIGNA [Suspect]
     Dosage: 150 MG, BID
     Route: 048
     Dates: start: 20130404
  3. TASIGNA [Suspect]
     Dosage: 300 MG, BID
     Route: 048
     Dates: start: 20130409
  4. ALLOPURINOL [Concomitant]
     Dosage: 300 MG, QD
  5. FENTANYL [Concomitant]
     Indication: PAIN
     Dosage: 100 MG, Q12H
  6. ZOFRAN [Concomitant]
     Indication: NAUSEA
     Dosage: 4 MG, Q6H
  7. OXYCODONE [Concomitant]
     Indication: PAIN
     Dosage: 30 MG, Q4H

REACTIONS (2)
  - Leukaemic infiltration [Unknown]
  - Rash [Recovering/Resolving]
